FAERS Safety Report 13589011 (Version 2)
Quarter: 2017Q2

REPORT INFORMATION
  Report Type: Report from Study
  Country: DE (occurrence: DE)
  Receive Date: 20170529
  Receipt Date: 20170605
  Transmission Date: 20170830
  Serious: Yes (Hospitalization)
  Sender: FDA-Public Use
  Company Number: DE-AMGEN-DEUCT2017078839

PATIENT
  Age: 34 Year
  Weight: 57 kg

DRUGS (4)
  1. CARBOPLATIN. [Suspect]
     Active Substance: CARBOPLATIN
     Indication: BREAST CANCER
     Dosage: 240 MG, QWK
     Route: 042
     Dates: start: 20170425
  2. L-THYROXIN [Concomitant]
     Active Substance: LEVOTHYROXINE SODIUM
     Dosage: 75 MUG, UNK
     Dates: start: 2011
  3. DENOSUMAB [Suspect]
     Active Substance: DENOSUMAB
     Indication: BREAST CANCER
     Dosage: 120 MG, Q4WK
     Route: 058
     Dates: start: 20170425
  4. PACLITAXEL ALBUMIN [Suspect]
     Active Substance: PACLITAXEL
     Indication: BREAST CANCER
     Dosage: 200 MG, QWK
     Route: 042
     Dates: start: 20170425

REACTIONS (1)
  - Infection [Recovered/Resolved]

NARRATIVE: CASE EVENT DATE: 20170519
